FAERS Safety Report 9413100 (Version 1)
Quarter: 2013Q3

REPORT INFORMATION
  Report Type: Spontaneous
  Country: SE (occurrence: None)
  Receive Date: 20130705
  Receipt Date: 20130705
  Transmission Date: 20140515
  Serious: Yes (Hospitalization)
  Sender: FDA-Public Use
  Company Number: 2013SE0126

PATIENT
  Age: 1 Year
  Sex: Male

DRUGS (1)
  1. KINERET (ANAKINRA), NOT AVAILABLE [Suspect]
     Indication: INTERLEUKIN THERAPY
     Dosage: 10 MG 1 IN 1 D
     Route: 058
     Dates: start: 20081113, end: 20081201

REACTIONS (5)
  - Anaphylactic reaction [None]
  - Rash pruritic [None]
  - Urticaria [None]
  - Pneumonia [None]
  - Drug ineffective for unapproved indication [None]
